FAERS Safety Report 19447480 (Version 1)
Quarter: 2021Q2

REPORT INFORMATION
  Report Type: Spontaneous
  Country: IT (occurrence: IT)
  Receive Date: 20210622
  Receipt Date: 20210622
  Transmission Date: 20210717
  Serious: Yes (Other)
  Sender: FDA-Public Use
  Company Number: IT-BEH-2021132980

PATIENT
  Age: 9 Year
  Sex: Female
  Weight: 64 kg

DRUGS (6)
  1. LUCEN [ESOMEPRAZOLE SODIUM] [Concomitant]
     Dosage: 40 MILLIGRAM
     Route: 048
  2. LEDERFOLIN [Concomitant]
     Active Substance: LEUCOVORIN CALCIUM
     Route: 048
  3. PRIVIGEN [Suspect]
     Active Substance: HUMAN IMMUNOGLOBULIN G
     Indication: DERMATOMYOSITIS
     Dosage: 60 GRAM CYLICAL
     Route: 042
     Dates: start: 20190118, end: 20201210
  4. DELTACORTENE [Concomitant]
     Active Substance: PREDNISONE
     Dosage: 25 MILLIGRAM
  5. CICLOSPORIN [Concomitant]
     Active Substance: CYCLOSPORINE
     Route: 048
  6. REUMAFLEX [METHOTREXATE SODIUM] [Concomitant]
     Active Substance: METHOTREXATE SODIUM
     Dosage: 20 MILLIGRAM

REACTIONS (6)
  - Throat tightness [Recovered/Resolved]
  - Hyperventilation [Recovered/Resolved]
  - Face oedema [Recovered/Resolved]
  - Flushing [Recovered/Resolved]
  - Off label use [Unknown]
  - No adverse event [Unknown]

NARRATIVE: CASE EVENT DATE: 20201210
